FAERS Safety Report 7335479-9 (Version None)
Quarter: 2011Q1

REPORT INFORMATION
  Report Type: 
  Country: None (occurrence: None)
  Receive Date: 20110307
  Receipt Date: 20110225
  Transmission Date: 20110831
  Serious: Yes (Other)
  Sender: FDA-Public Use
  Company Number: US-ASTRAZENECA-2011SE03325

PATIENT
  Age: 25592 Day
  Sex: Male
  Weight: 82 kg

DRUGS (3)
  1. ZOLADEX [Suspect]
     Route: 058
  2. ZOLADEX [Suspect]
     Route: 058
     Dates: start: 20110118
  3. AMLODIPINE [Concomitant]
     Route: 048
     Dates: start: 20071024

REACTIONS (1)
  - EXPIRED DRUG ADMINISTERED [None]
